FAERS Safety Report 14847412 (Version 9)
Quarter: 2018Q3

REPORT INFORMATION
  Report Type: Report from Study
  Country: IT (occurrence: IT)
  Receive Date: 20180504
  Receipt Date: 20180918
  Transmission Date: 20181010
  Serious: Yes (Hospitalization, Other)
  Sender: FDA-Public Use
  Company Number: IT-PFIZER INC-2018176040

PATIENT
  Age: 76 Year
  Sex: Male

DRUGS (2)
  1. ATORVASTATIN CALCIUM. [Suspect]
     Active Substance: ATORVASTATIN CALCIUM
     Dosage: UNK
  2. INFLUENZA VACCINE [Interacting]
     Active Substance: INFLUENZA VIRUS VACCINE
     Indication: PROPHYLAXIS
     Dosage: UNK

REACTIONS (9)
  - Dermatitis [Unknown]
  - Rash [Unknown]
  - Biopsy skin abnormal [Unknown]
  - Renal failure [Unknown]
  - Drug interaction [Unknown]
  - Stevens-Johnson syndrome [Unknown]
  - Skin exfoliation [Unknown]
  - Skin necrosis [Unknown]
  - Rhabdomyolysis [Unknown]
